FAERS Safety Report 12885957 (Version 1)
Quarter: 2016Q4

REPORT INFORMATION
  Report Type: Spontaneous
  Country: US (occurrence: US)
  Receive Date: 20161026
  Receipt Date: 20161026
  Transmission Date: 20170207
  Serious: Yes (Hospitalization)
  Sender: FDA-Public Use
  Company Number: None

PATIENT
  Age: 66 Year
  Sex: Female
  Weight: 106.5 kg

DRUGS (12)
  1. FLEXERIL [Concomitant]
     Active Substance: CYCLOBENZAPRINE HYDROCHLORIDE
  2. PEPCID [Concomitant]
     Active Substance: FAMOTIDINE
  3. CYMBALTA [Concomitant]
     Active Substance: DULOXETINE HYDROCHLORIDE
  4. AMIT [Concomitant]
  5. TRADJENTA [Suspect]
     Active Substance: LINAGLIPTIN
     Indication: DIABETES MELLITUS
     Route: 048
  6. LIPITOR [Concomitant]
     Active Substance: ATORVASTATIN CALCIUM
  7. LOTENSIN [Concomitant]
     Active Substance: BENAZEPRIL HYDROCHLORIDE
  8. NOVOLIN 70/30 [Suspect]
     Active Substance: INSULIN HUMAN
     Indication: DIABETES MELLITUS
     Route: 058
  9. COREG [Concomitant]
     Active Substance: CARVEDILOL
  10. ROCALTROL [Concomitant]
     Active Substance: CALCITRIOL
  11. MSIR [Concomitant]
     Active Substance: MORPHINE SULFATE
  12. HYGROTEN [Concomitant]

REACTIONS (7)
  - Knee operation [None]
  - Post procedural complication [None]
  - Dysphagia [None]
  - Asthenia [None]
  - Procedural pain [None]
  - Mobility decreased [None]
  - Hypoglycaemia [None]

NARRATIVE: CASE EVENT DATE: 20150815
